FAERS Safety Report 16583041 (Version 3)
Quarter: 2019Q4

REPORT INFORMATION
  Report Type: Spontaneous
  Country: US (occurrence: US)
  Receive Date: 20190717
  Receipt Date: 20191031
  Transmission Date: 20200122
  Serious: No
  Sender: FDA-Public Use
  Company Number: US-TEVA-2019-US-1079451

PATIENT
  Sex: Female

DRUGS (1)
  1. AJOVY [Suspect]
     Active Substance: FREMANEZUMAB-VFRM
     Indication: MIGRAINE
     Dosage: LAST INJECTIONS TAKEN 7/18/19 AND 8/17/19
     Route: 058
     Dates: start: 20190220

REACTIONS (9)
  - Injection site mass [Unknown]
  - Migraine [Recovered/Resolved]
  - Migraine with aura [Unknown]
  - Vision blurred [Unknown]
  - Nausea [Unknown]
  - Depressed mood [Unknown]
  - Asthenopia [Unknown]
  - Fatigue [Unknown]
  - Tinnitus [Unknown]

NARRATIVE: CASE EVENT DATE: 2019
